FAERS Safety Report 9633120 (Version 1)
Quarter: 2013Q4

REPORT INFORMATION
  Report Type: Spontaneous
  Country: US (occurrence: US)
  Receive Date: 20131019
  Receipt Date: 20131019
  Transmission Date: 20140711
  Serious: No
  Sender: FDA-Public Use
  Company Number: US-009507513-1310USA007486

PATIENT
  Sex: Male

DRUGS (2)
  1. JANUVIA [Suspect]
     Indication: BLOOD GLUCOSE
     Dosage: 1 DF, QD
     Route: 048
  2. NEXIUM [Suspect]

REACTIONS (4)
  - Blood glucose abnormal [Unknown]
  - Allergy to chemicals [Unknown]
  - Rash [Unknown]
  - Drug ineffective [Unknown]
